FAERS Safety Report 7244214-4 (Version None)
Quarter: 2011Q1

REPORT INFORMATION
  Report Type: 
  Country: None (occurrence: None)
  Receive Date: 20110119
  Receipt Date: 20110119
  Transmission Date: 20110831
  Serious: No
  Sender: FDA-Public Use
  Company Number: None

PATIENT
  Sex: Female
  Weight: 90.7194 kg

DRUGS (1)
  1. ZYRTEC [Suspect]
     Indication: MULTIPLE ALLERGIES
     Dosage: 10MG ONCE DAILY
     Dates: start: 20100101, end: 20110115

REACTIONS (3)
  - FEELING HOT [None]
  - PRURITUS [None]
  - DRUG WITHDRAWAL SYNDROME [None]
